FAERS Safety Report 12419556 (Version 3)
Quarter: 2016Q3

REPORT INFORMATION
  Report Type: Report from Study
  Country: US (occurrence: US)
  Receive Date: 20160531
  Receipt Date: 20160923
  Transmission Date: 20161109
  Serious: Yes (Death, Hospitalization, Other)
  Sender: FDA-Public Use
  Company Number: US-BAYER-2016-098174

PATIENT
  Age: 76 Year
  Sex: Female
  Weight: 60.32 kg

DRUGS (1)
  1. ADEMPAS [Suspect]
     Active Substance: RIOCIGUAT
     Indication: PULMONARY HYPERTENSION
     Dosage: 2 MG, TID (TABLET)
     Route: 048
     Dates: start: 20160323

REACTIONS (3)
  - Surgery [Unknown]
  - Death [Fatal]
  - Arterial thrombosis [Unknown]

NARRATIVE: CASE EVENT DATE: 20160616
